FAERS Safety Report 6241614-6 (Version None)
Quarter: 2009Q2

REPORT INFORMATION
  Report Type: 
  Country: None (occurrence: None)
  Receive Date: 20090623
  Receipt Date: 20050408
  Transmission Date: 20091009
  Serious: Yes (Death)
  Sender: FDA-Public Use
  Company Number: BR-ROCHE-574214

PATIENT
  Sex: Male

DRUGS (42)
  1. DACLIZUMAB [Suspect]
     Route: 042
     Dates: start: 20030709, end: 20030709
  2. DACLIZUMAB [Suspect]
     Route: 042
     Dates: start: 20030725, end: 20030903
  3. MYCOPHENOLATE MOFETIL [Suspect]
     Route: 048
     Dates: start: 20030709
  4. SIROLIMUS [Suspect]
     Dosage: GIVEN AS DRAGEES
     Route: 048
     Dates: start: 20030709
  5. SIROLIMUS [Suspect]
     Dosage: GIVEN AS DRAGEES
     Route: 048
     Dates: start: 20030713
  6. SIROLIMUS [Suspect]
     Dosage: GIVEN AS SUSPENSION
     Route: 048
     Dates: start: 20030726
  7. SIROLIMUS [Suspect]
     Dosage: GIVEN AS SUSPENSION
     Route: 048
     Dates: start: 20030828
  8. SIROLIMUS [Suspect]
     Dosage: GIVEN AS SOLUTION
     Route: 048
     Dates: start: 20030924
  9. SIROLIMUS [Suspect]
     Dosage: GIVEN AS SOLUTION
     Route: 048
     Dates: start: 20031013
  10. PREDNISONE [Suspect]
     Route: 065
     Dates: start: 20030718
  11. PREDNISONE [Suspect]
     Route: 065
     Dates: start: 20030724
  12. PREDNISONE [Suspect]
     Route: 065
     Dates: start: 20030806
  13. PREDNISONE [Suspect]
     Route: 065
     Dates: start: 20030813
  14. PREDNISONE [Suspect]
     Route: 065
     Dates: start: 20030903
  15. PREDNISONE [Suspect]
     Route: 065
     Dates: start: 20031013
  16. PREDNISONE [Suspect]
     Route: 065
     Dates: start: 20031015
  17. PREDNISONE [Suspect]
     Route: 065
     Dates: start: 20040826
  18. METHYLPREDNISOLONE [Suspect]
     Route: 042
     Dates: start: 20030710
  19. METHYLPREDNISOLONE [Suspect]
     Route: 042
     Dates: start: 20030711
  20. METHYLPREDNISOLONE [Suspect]
     Route: 042
     Dates: start: 20030712
  21. METHYLPREDNISOLONE [Suspect]
     Dosage: DOSE INCREASED FOR REJECTION EPISODE.
     Route: 042
     Dates: start: 20030713, end: 20030718
  22. ALBENDAZOL [Concomitant]
     Route: 048
     Dates: start: 20031128, end: 20031202
  23. AMOXICILINA [Concomitant]
     Route: 048
     Dates: start: 20030730, end: 20030806
  24. AMOXICILINA [Concomitant]
     Route: 048
     Dates: start: 20040616, end: 20040627
  25. CAPTOPRIL [Concomitant]
     Route: 048
     Dates: start: 20030903, end: 20040218
  26. CAPTOPRIL [Concomitant]
     Route: 048
     Dates: start: 20030820
  27. CAPTOPRIL [Concomitant]
     Route: 048
     Dates: start: 20030710
  28. METHYLDOPA [Concomitant]
     Route: 048
     Dates: start: 20030709
  29. METHYLDOPA [Concomitant]
     Route: 048
     Dates: start: 20030717
  30. METHYLDOPA [Concomitant]
     Route: 048
     Dates: start: 20030720
  31. METHYLDOPA [Concomitant]
     Route: 048
     Dates: start: 20030813, end: 20030903
  32. NIFEDIPINE [Concomitant]
     Route: 048
     Dates: start: 20030710
  33. NIFEDIPINE [Concomitant]
     Route: 048
     Dates: start: 20030720
  34. NIFEDIPINE [Concomitant]
     Route: 048
     Dates: start: 20040331
  35. NORFLOXACIN [Concomitant]
     Route: 048
     Dates: start: 20031128, end: 20031202
  36. SIMVASTATINA [Concomitant]
     Route: 048
     Dates: start: 20031015
  37. SIMVASTATINA [Concomitant]
     Route: 048
     Dates: start: 20040114
  38. SIMVASTATINA [Concomitant]
     Route: 048
     Dates: start: 20040414
  39. SIMVASTATINA [Concomitant]
     Route: 048
     Dates: start: 20040826
  40. TRIMETROPRIM/SULFAMETOXAZOL [Concomitant]
     Route: 048
     Dates: start: 20030725, end: 20041005
  41. CEFOTAXIME [Concomitant]
     Route: 042
     Dates: start: 20030709
  42. CEFOTAXIME [Concomitant]
     Route: 042
     Dates: start: 20030710, end: 20030714

REACTIONS (1)
  - CEREBROVASCULAR ACCIDENT [None]
